FAERS Safety Report 6566987-6 (Version None)
Quarter: 2010Q1

REPORT INFORMATION
  Report Type: 
  Country: None (occurrence: None)
  Receive Date: 20100202
  Receipt Date: 20100125
  Transmission Date: 20100710
  Serious: Yes (Other)
  Sender: FDA-Public Use
  Company Number: US-MERCK-0910USA03237

PATIENT
  Age: 47 Year
  Sex: Female
  Weight: 76 kg

DRUGS (8)
  1. IVEMEND [Suspect]
     Indication: PROPHYLAXIS OF NAUSEA AND VOMITING
     Route: 041
  2. IVEMEND [Suspect]
     Route: 041
     Dates: start: 20090714
  3. IVEMEND [Suspect]
     Route: 041
  4. IVEMEND [Suspect]
     Route: 041
  5. IVEMEND [Suspect]
     Route: 041
     Dates: start: 20090714
  6. IVEMEND [Suspect]
     Route: 041
  7. PACLITAXEL [Concomitant]
     Route: 065
  8. CYCLOPHOSPHAMIDE AND DOXORUBICIN [Concomitant]
     Route: 065

REACTIONS (4)
  - INFUSION SITE PAIN [None]
  - SKIN DISCOLOURATION [None]
  - URTICARIA [None]
  - VASCULAR ACCESS COMPLICATION [None]
